FAERS Safety Report 5091370-2 (Version None)
Quarter: 2006Q3

REPORT INFORMATION
  Report Type: 
  Country: None (occurrence: None)
  Receive Date: 20060727
  Receipt Date: 20060629
  Transmission Date: 20061208
  Serious: Yes (Other)
  Sender: FDA-Public Use
  Company Number: 2006083503

PATIENT
  Age: 48 Year
  Sex: Female
  Weight: 53.5244 kg

DRUGS (1)
  1. LYRICA [Suspect]
     Indication: PAIN
     Dosage: 75 MG (75 MG,1 IN 1 D),ORAL
     Route: 048
     Dates: start: 20060401

REACTIONS (1)
  - WEIGHT INCREASED [None]
